FAERS Safety Report 22151418 (Version 1)
Quarter: 2023Q1

REPORT INFORMATION
  Report Type: Spontaneous
  Country: US (occurrence: None)
  Receive Date: 20230328
  Receipt Date: 20230328
  Transmission Date: 20230418
  Serious: Yes (Life-Threatening, Hospitalization, Disabling)
  Sender: FDA-Public Use
  Company Number: None

PATIENT
  Age: 66 Year
  Sex: Female
  Weight: 99 kg

DRUGS (4)
  1. OXYCODONE [Suspect]
     Active Substance: OXYCODONE
     Indication: Postoperative analgesia
     Route: 048
     Dates: start: 20220330, end: 20220330
  2. GABAPENTIN [Concomitant]
     Active Substance: GABAPENTIN
  3. Lexapro for anxiety [Concomitant]
  4. depression [Concomitant]

REACTIONS (7)
  - Contraindicated product prescribed [None]
  - Respiratory arrest [None]
  - Deafness [None]
  - Brain hypoxia [None]
  - Executive dysfunction [None]
  - Tinnitus [None]
  - Overdose [None]

NARRATIVE: CASE EVENT DATE: 20220330
